FAERS Safety Report 22400159 (Version 4)
Quarter: 2024Q2

REPORT INFORMATION
  Report Type: Spontaneous
  Country: CN (occurrence: CN)
  Receive Date: 20230602
  Receipt Date: 20240426
  Transmission Date: 20240716
  Serious: Yes (Other)
  Sender: FDA-Public Use
  Company Number: CN-SUN PHARMACEUTICAL INDUSTRIES LTD-2023R1-392667

PATIENT
  Age: 16 Month
  Sex: Male
  Weight: 11 kg

DRUGS (4)
  1. VALPROATE [Suspect]
     Active Substance: VALPROIC ACID
     Indication: Epilepsy
     Dosage: UNK 2.5 ML TWICE DAILY
     Route: 048
  2. PHENOBARBITAL [Concomitant]
     Active Substance: PHENOBARBITAL
     Indication: Epilepsy
     Dosage: 0.1 GRAM, QD
     Route: 030
  3. LYSINE [Concomitant]
     Active Substance: LYSINE
     Indication: Epilepsy
     Dosage: 0.2 GRAM, QD
     Route: 042
  4. OXIRACETAM [Concomitant]
     Active Substance: OXIRACETAM
     Indication: Epilepsy
     Dosage: 1.0 GRAM, QD
     Route: 042

REACTIONS (1)
  - Stevens-Johnson syndrome [Recovered/Resolved]
